FAERS Safety Report 8238762-8 (Version None)
Quarter: 2012Q1

REPORT INFORMATION
  Report Type: 
  Country: None (occurrence: None)
  Receive Date: 20120327
  Receipt Date: 20120312
  Transmission Date: 20120608
  Serious: Yes (Other)
  Sender: FDA-Public Use
  Company Number: BR-WATSON-2012-04697

PATIENT
  Age: 33 Year
  Sex: Female

DRUGS (2)
  1. DIVALPROEX SODIUM [Suspect]
     Indication: MIGRAINE PROPHYLAXIS
     Dosage: UNK
     Route: 065
  2. TOPIRAMATE [Suspect]
     Indication: MIGRAINE PROPHYLAXIS
     Dosage: 25 MG, DAILY
     Route: 065

REACTIONS (2)
  - METAMORPHOPSIA [None]
  - WEIGHT INCREASED [None]
